FAERS Safety Report 5106991-8 (Version None)
Quarter: 2006Q3

REPORT INFORMATION
  Report Type: 
  Country: None (occurrence: None)
  Receive Date: 20060913
  Receipt Date: 20060830
  Transmission Date: 20061208
  Serious: Yes (Other)
  Sender: FDA-Public Use
  Company Number: VNL_0150_2006

PATIENT
  Sex: Male

DRUGS (3)
  1. APO-GO [Suspect]
     Dosage: 2.5 MG/HR CON SC
     Route: 058
     Dates: start: 20060117, end: 20060415
  2. MADOPAR HBS [Concomitant]
  3. CO-BENELDOPA [Concomitant]

REACTIONS (1)
  - SLEEP ATTACKS [None]
